FAERS Safety Report 9058104 (Version 2)
Quarter: 2013Q3

REPORT INFORMATION
  Report Type: Spontaneous
  Country: US (occurrence: US)
  Receive Date: 20130211
  Receipt Date: 20130710
  Transmission Date: 20140515
  Serious: No
  Sender: FDA-Public Use
  Company Number: US-BIOGENIDEC-2013BI010314

PATIENT
  Sex: Female

DRUGS (1)
  1. TYSABRI [Suspect]
     Indication: MULTIPLE SCLEROSIS
     Route: 042
     Dates: start: 20120308, end: 20130522

REACTIONS (6)
  - Nervousness [Unknown]
  - Anxiety [Unknown]
  - Emotional distress [Unknown]
  - Gait disturbance [Unknown]
  - Multiple sclerosis [Not Recovered/Not Resolved]
  - Herpes zoster [Not Recovered/Not Resolved]
